FAERS Safety Report 7088439-X (Version None)
Quarter: 2010Q4

REPORT INFORMATION
  Report Type: 
  Country: None (occurrence: None)
  Receive Date: 20101029
  Receipt Date: 20101014
  Transmission Date: 20110411
  Serious: Yes (Other)
  Sender: FDA-Public Use
  Company Number: ACO_02770_2010

PATIENT
  Sex: Male

DRUGS (1)
  1. AMPYRA [Suspect]
     Indication: PRODUCT USED FOR UNKNOWN INDICATION
     Dosage: (10 MG BID)
     Dates: start: 20100801, end: 20100801

REACTIONS (6)
  - COORDINATION ABNORMAL [None]
  - DYSSTASIA [None]
  - FACIAL PAIN [None]
  - FALL [None]
  - INSOMNIA [None]
  - MULTIPLE SCLEROSIS RELAPSE [None]
